FAERS Safety Report 6653744-5 (Version None)
Quarter: 2010Q1

REPORT INFORMATION
  Report Type: 
  Country: None (occurrence: None)
  Receive Date: 20100326
  Receipt Date: 20100322
  Transmission Date: 20100710
  Serious: Yes (Hospitalization)
  Sender: FDA-Public Use
  Company Number: A0851106A

PATIENT
  Age: 38 Year
  Sex: Male

DRUGS (1)
  1. NICORETTE (MINT) [Suspect]
     Route: 002
     Dates: end: 20100212

REACTIONS (25)
  - BLOOD GLUCOSE INCREASED [None]
  - CONSTIPATION [None]
  - DEHYDRATION [None]
  - DISSOCIATION [None]
  - DRUG ADMINISTRATION ERROR [None]
  - DRY MOUTH [None]
  - DRY SKIN [None]
  - DYSPNOEA [None]
  - ELECTROLYTE DEPLETION [None]
  - FATIGUE [None]
  - HEART RATE INCREASED [None]
  - HUNGER [None]
  - HYPERPHAGIA [None]
  - LABORATORY TEST ABNORMAL [None]
  - LISTLESS [None]
  - MUSCLE SPASMS [None]
  - NICOTINE DEPENDENCE [None]
  - POLLAKIURIA [None]
  - POLYDIPSIA [None]
  - TERMINAL STATE [None]
  - TYPE 1 DIABETES MELLITUS [None]
  - URINE OUTPUT INCREASED [None]
  - VISION BLURRED [None]
  - VOMITING [None]
  - WEIGHT DECREASED [None]
